FAERS Safety Report 9897104 (Version 1)
Quarter: 2014Q1

REPORT INFORMATION
  Report Type: Report from Study
  Country: US (occurrence: US)
  Receive Date: 20140214
  Receipt Date: 20140214
  Transmission Date: 20141002
  Serious: Yes (Other)
  Sender: FDA-Public Use
  Company Number: US-ROCHE-1346276

PATIENT
  Sex: 0

DRUGS (2)
  1. BEVACIZUMAB [Suspect]
     Indication: GLIOBLASTOMA
     Route: 042
  2. TPI 287 [Suspect]
     Indication: GLIOBLASTOMA
     Route: 042

REACTIONS (2)
  - Neutrophil count abnormal [Unknown]
  - Wound dehiscence [Unknown]
